FAERS Safety Report 5210947-4 (Version None)
Quarter: 2006Q4

REPORT INFORMATION
  Report Type: 
  Country: None (occurrence: None)
  Receive Date: 20061130
  Receipt Date: 20060719
  Transmission Date: 20070319
  Serious: Yes (Disabling, Other)
  Sender: FDA-Public Use
  Company Number: WAES 0607USA04110

PATIENT
  Age: 64 Year
  Sex: Female
  Weight: 60.782 kg

DRUGS (5)
  1. FOSAMAX [Suspect]
     Indication: OSTEOPENIA
     Dosage: 70 MG/WKY/PO
     Route: 048
     Dates: start: 20030806, end: 20060701
  2. ASACOL [Concomitant]
  3. FLONASE [Concomitant]
  4. METAMUCIL [Concomitant]
  5. CALCIUM (UNSPECIFIED) [Concomitant]

REACTIONS (1)
  - OSTEONECROSIS [None]
